FAERS Safety Report 9846330 (Version 1)
Quarter: 2014Q1

REPORT INFORMATION
  Report Type: Spontaneous
  Country: US (occurrence: None)
  Receive Date: 20140123
  Receipt Date: 20140123
  Transmission Date: 20141002
  Serious: Yes (Death, Hospitalization, Other)
  Sender: FDA-Public Use
  Company Number: SYM-2014-15104

PATIENT
  Age: 53 Year
  Sex: Male

DRUGS (4)
  1. BUPROPION HYDROCHLORIDE [Suspect]
     Indication: PRODUCT USED FOR UNKNOWN INDICATION
     Dosage: 20 TO 30 TABLETS, ORAL
     Route: 048
  2. VENLAFAXINE HYDROCHLORIDE [Suspect]
     Indication: PRODUCT USED FOR UNKNOWN INDICATION
     Route: 048
  3. VALPROIC ACID (VALPROIC ACID) (VALPROIC ACID) [Concomitant]
  4. GABAPENTIN (GABAPENTIN) (GABAPENTIN) [Concomitant]

REACTIONS (7)
  - Completed suicide [None]
  - Overdose [None]
  - Status epilepticus [None]
  - Unresponsive to stimuli [None]
  - Nausea [None]
  - Hypotension [None]
  - Convulsion [None]
